FAERS Safety Report 5005017-4 (Version None)
Quarter: 2006Q2

REPORT INFORMATION
  Report Type: 
  Country: None (occurrence: None)
  Receive Date: 20060512
  Receipt Date: 20060503
  Transmission Date: 20061013
  Serious: Yes (Other)
  Sender: FDA-Public Use
  Company Number: 2006059882

PATIENT
  Age: 20 Year
  Sex: Female

DRUGS (3)
  1. DILANTIN [Suspect]
     Indication: ILL-DEFINED DISORDER
  2. TEGRETOL [Suspect]
     Indication: ILL-DEFINED DISORDER
  3. VENTOLIN [Concomitant]

REACTIONS (10)
  - ANOREXIA [None]
  - ARTHRALGIA [None]
  - DERMATITIS PSORIASIFORM [None]
  - FATIGUE [None]
  - HEPATITIS [None]
  - MYALGIA [None]
  - PRURITUS [None]
  - RASH ERYTHEMATOUS [None]
  - RASH MACULO-PAPULAR [None]
  - RASH MORBILLIFORM [None]
